FAERS Safety Report 7078258-2 (Version None)
Quarter: 2010Q4

REPORT INFORMATION
  Report Type: 
  Country: None (occurrence: None)
  Receive Date: 20101101
  Receipt Date: 20101101
  Transmission Date: 20110411
  Serious: Yes (Hospitalization)
  Sender: FDA-Public Use
  Company Number: None

PATIENT
  Age: 63 Year
  Sex: Male
  Weight: 84.82 kg

DRUGS (1)
  1. ROPINIROLE [Suspect]
     Indication: RESTLESS LEGS SYNDROME
     Dosage: 4 MG TID PO
     Route: 048
     Dates: start: 20100405, end: 20101006

REACTIONS (9)
  - ABNORMAL BEHAVIOUR [None]
  - AGGRESSION [None]
  - AGITATION [None]
  - CONVULSION [None]
  - DELIRIUM [None]
  - INCOHERENT [None]
  - IRRITABILITY [None]
  - SOMNOLENCE [None]
  - UNRESPONSIVE TO STIMULI [None]
